FAERS Safety Report 21990094 (Version 1)
Quarter: 2023Q1

REPORT INFORMATION
  Report Type: Spontaneous
  Country: US (occurrence: None)
  Receive Date: 20230213
  Receipt Date: 20230213
  Transmission Date: 20230418
  Serious: Yes (Other)
  Sender: FDA-Public Use
  Company Number: None

PATIENT
  Age: 65 Year
  Sex: Female
  Weight: 63 kg

DRUGS (16)
  1. PAXLOVID [Suspect]
     Active Substance: NIRMATRELVIR\RITONAVIR
     Indication: COVID-19
     Dosage: OTHER QUANTITY : 30 CAPLETS;?FREQUENCY : EVERY 12 HOURS;?
     Route: 048
     Dates: start: 20230122, end: 20230128
  2. HUMALOG [Concomitant]
  3. TOUJEO [Concomitant]
     Active Substance: INSULIN GLARGINE
  4. SYNTHROID [Concomitant]
  5. dexcom [Concomitant]
  6. rousuvastatin [Concomitant]
  7. CYCLOBENZAPRINE [Concomitant]
     Active Substance: CYCLOBENZAPRINE
  8. AMBIEN [Concomitant]
     Active Substance: ZOLPIDEM TARTRATE
  9. FEXOFENADINE HCL [Concomitant]
     Active Substance: FEXOFENADINE HYDROCHLORIDE
  10. ASPIRIN [Concomitant]
     Active Substance: ASPIRIN
  11. ZINC [Concomitant]
     Active Substance: ZINC
  12. FISH OIL [Concomitant]
     Active Substance: FISH OIL
  13. HERBALS\TURMERIC [Concomitant]
     Active Substance: HERBALS\TURMERIC
  14. BENADRYL [Concomitant]
     Active Substance: DIPHENHYDRAMINE HYDROCHLORIDE
  15. MELATONIN [Concomitant]
     Active Substance: MELATONIN
  16. FLUTICASONE [Concomitant]
     Active Substance: FLUTICASONE

REACTIONS (1)
  - Blood glucose increased [None]

NARRATIVE: CASE EVENT DATE: 20230122
